FAERS Safety Report 24155949 (Version 3)
Quarter: 2024Q3

REPORT INFORMATION
  Report Type: Spontaneous
  Country: GB (occurrence: GB)
  Receive Date: 20240731
  Receipt Date: 20240923
  Transmission Date: 20241016
  Serious: Yes (Other)
  Sender: NOVARTIS
  Company Number: GB-002147023-NVSC2024GB155856

PATIENT
  Age: 77 Year
  Sex: Male

DRUGS (3)
  1. PLUVICTO [Suspect]
     Active Substance: LUTETIUM LU-177 VIPIVOTIDE TETRAXETAN
     Indication: Hormone-refractory prostate cancer
     Dosage: UNK( 6 FULL CYCLES)
     Route: 065
     Dates: start: 20230302, end: 20230928
  2. DOCETAXEL [Concomitant]
     Active Substance: DOCETAXEL\DOCETAXEL ANHYDROUS
     Indication: Product used for unknown indication
     Dosage: UNK(X 6 CYCLES)
     Route: 065
     Dates: start: 201605
  3. BICALUTAMIDE [Concomitant]
     Active Substance: BICALUTAMIDE
     Indication: Product used for unknown indication
     Dosage: UNK
     Route: 065
     Dates: end: 202006

REACTIONS (3)
  - Dementia [Recovered/Resolved]
  - Confusional state [Recovered/Resolved]
  - Disinhibition [Recovered/Resolved]

NARRATIVE: CASE EVENT DATE: 20240501
